FAERS Safety Report 9321211 (Version 1)
Quarter: 2013Q2

REPORT INFORMATION
  Report Type: Spontaneous
  Country: DE (occurrence: None)
  Receive Date: 20130528
  Receipt Date: 20130528
  Transmission Date: 20140414
  Serious: Yes (Other)
  Sender: FDA-Public Use
  Company Number: GER/GER/13/0029588

PATIENT
  Sex: Female
  Weight: 64 kg

DRUGS (2)
  1. VENLAFAXINE [Suspect]
     Indication: DEPRESSION
     Dosage: 1 D
     Route: 048
  2. TRIMIPRAMINE MALEATE (TRIMIPRAMINE MALEATE) [Concomitant]

REACTIONS (1)
  - Blood triglycerides increased [None]
